FAERS Safety Report 16553207 (Version 7)
Quarter: 2019Q3

REPORT INFORMATION
  Report Type: Report from Study
  Country: CN (occurrence: CN)
  Receive Date: 20190710
  Receipt Date: 20190926
  Transmission Date: 20191004
  Serious: Yes (Hospitalization)
  Sender: FDA-Public Use
  Company Number: CN-ROCHE-2352684

PATIENT
  Age: 50 Year
  Sex: Male
  Weight: 76 kg

DRUGS (21)
  1. ALPRAZOLAM. [Concomitant]
     Active Substance: ALPRAZOLAM
     Indication: INSOMNIA
     Dosage: CURE FOR INSOMNIA
     Route: 065
     Dates: start: 201808, end: 20190712
  2. FENTANYL. [Concomitant]
     Active Substance: FENTANYL
     Indication: PAIN
     Route: 062
     Dates: start: 20190815, end: 20190815
  3. LEUCOGEN [Concomitant]
     Active Substance: LEUCOGEN
     Indication: WHITE BLOOD CELL COUNT DECREASED
     Route: 065
     Dates: start: 20190626, end: 201906
  4. ATEZOLIZUMAB. [Suspect]
     Active Substance: ATEZOLIZUMAB
     Indication: HEPATOCELLULAR CARCINOMA
     Dosage: MOST RECENT DOSE (1200 MG) PRIOR TO SAE ONSET ON 28/JUN/2019
     Route: 042
     Dates: start: 20181128
  5. OXYCONTIN [Concomitant]
     Active Substance: OXYCODONE HYDROCHLORIDE
     Indication: PAIN
     Dosage: PROLONGED-RELEASE TABLETS
     Route: 065
     Dates: start: 20190606, end: 20190615
  6. IBUPROFEN. [Concomitant]
     Active Substance: IBUPROFEN
     Indication: PAIN
     Route: 065
     Dates: start: 201905, end: 20190605
  7. RUI BAI [Concomitant]
     Route: 065
     Dates: start: 20190621, end: 20190624
  8. CELEBREX [Concomitant]
     Active Substance: CELECOXIB
     Indication: PAIN
     Route: 065
     Dates: start: 20190815
  9. RUI BAI [Concomitant]
     Indication: BLOOD ALBUMIN DECREASED
     Route: 065
     Dates: start: 20190802, end: 20190806
  10. INDOMETACIN [Concomitant]
     Active Substance: INDOMETHACIN
     Indication: PAIN
     Dosage: SUPPOSITORIES
     Route: 065
     Dates: start: 20190712, end: 20190812
  11. BEVACIZUMAB. [Suspect]
     Active Substance: BEVACIZUMAB
     Indication: HEPATOCELLULAR CARCINOMA
     Dosage: MOST RECENT DOSE (1200 MG) PRIOR TO SAE ONSET ON 28/JUN/2019
     Route: 042
     Dates: start: 20181128
  12. EUTHYROX [Concomitant]
     Active Substance: LEVOTHYROXINE SODIUM
     Indication: HYPOTHYROIDISM
     Route: 065
     Dates: start: 20190318
  13. ENTECAVIR. [Concomitant]
     Active Substance: ENTECAVIR
     Indication: HEPATITIS B
     Route: 065
     Dates: start: 201801
  14. RUI BAI [Concomitant]
     Indication: NEUTROPHIL COUNT DECREASED
  15. SODIUM CHLORIDE. [Concomitant]
     Active Substance: SODIUM CHLORIDE
     Indication: INFECTION PROPHYLAXIS
     Route: 065
     Dates: start: 20190706, end: 20190706
  16. LEVOFLOXACIN LACTATE [Concomitant]
     Active Substance: LEVOFLOXACIN LACTATE
     Indication: INFECTION PROPHYLAXIS
     Route: 065
     Dates: start: 20190706, end: 20190706
  17. IBUPROFEN. [Concomitant]
     Active Substance: IBUPROFEN
     Route: 065
     Dates: start: 20190616, end: 20190712
  18. ESOMEPRAZOLE MAGNESIUM. [Concomitant]
     Active Substance: ESOMEPRAZOLE MAGNESIUM
     Route: 065
     Dates: start: 201905
  19. RECOMBINANT HUMAN INTERLEUKIN-11 [Concomitant]
     Active Substance: OPRELVEKIN
     Indication: PLATELET COUNT DECREASED
     Route: 065
     Dates: start: 20190620, end: 20190624
  20. RECOMBINANT HUMAN INTERLEUKIN-11 [Concomitant]
     Active Substance: OPRELVEKIN
     Route: 065
     Dates: start: 20190802, end: 20190806
  21. LEUCOGEN [Concomitant]
     Active Substance: LEUCOGEN
     Indication: NEUTROPHIL COUNT DECREASED

REACTIONS (1)
  - Upper gastrointestinal haemorrhage [Recovered/Resolved]

NARRATIVE: CASE EVENT DATE: 20190705
